FAERS Safety Report 24773140 (Version 1)
Quarter: 2024Q4

REPORT INFORMATION
  Report Type: Spontaneous
  Country: US (occurrence: US)
  Receive Date: 20241225
  Receipt Date: 20241225
  Transmission Date: 20250115
  Serious: No
  Sender: AMGEN
  Company Number: US-AMGEN-USASP2024251405

PATIENT

DRUGS (2)
  1. PREDNISONE [Suspect]
     Active Substance: PREDNISONE
     Indication: Immunosuppressant drug therapy
     Dosage: UNK
     Route: 065
  2. COLCHICINE [Concomitant]
     Active Substance: COLCHICINE
     Indication: Chronic graft versus host disease
     Dosage: 0.6 MILLIGRAM, QD OR BID

REACTIONS (4)
  - Treatment failure [Unknown]
  - Adverse event [Unknown]
  - Gastrointestinal disorder [Unknown]
  - Diarrhoea [Unknown]
